FAERS Safety Report 24395873 (Version 1)
Quarter: 2024Q4

REPORT INFORMATION
  Report Type: Spontaneous
  Country: BR (occurrence: BR)
  Receive Date: 20241004
  Receipt Date: 20241004
  Transmission Date: 20250115
  Serious: Yes (Hospitalization)
  Sender: MACLEODS
  Company Number: BR-MLMSERVICE-20240917-PI190517-00246-1

PATIENT

DRUGS (4)
  1. OLANZAPINE [Suspect]
     Active Substance: OLANZAPINE
     Indication: Psychomotor hyperactivity
     Route: 065
  2. LEVOMEPROMAZINE [Suspect]
     Active Substance: LEVOMEPROMAZINE
     Indication: Psychomotor hyperactivity
     Route: 065
  3. LITHIUM [Concomitant]
     Active Substance: LITHIUM
     Route: 065
  4. CLONAZEPAM [Concomitant]
     Active Substance: CLONAZEPAM
     Route: 065

REACTIONS (1)
  - Electrocardiogram QT prolonged [Unknown]
